FAERS Safety Report 9137153 (Version 1)
Quarter: 2013Q1

REPORT INFORMATION
  Report Type: Spontaneous
  Country: US (occurrence: US)
  Receive Date: 20130219
  Receipt Date: 20130219
  Transmission Date: 20140127
  Serious: No
  Sender: FDA-Public Use
  Company Number: US-BRISTOL-MYERS SQUIBB COMPANY-17132960

PATIENT
  Age: 60 Year
  Sex: Male

DRUGS (1)
  1. ORENCIA FOR INJ 250 MG/VIAL [Suspect]
     Indication: RHEUMATOID ARTHRITIS
     Dosage: LAST INF: 16OCT2012
     Route: 042

REACTIONS (4)
  - Nasal congestion [Unknown]
  - Oropharyngeal pain [Unknown]
  - Nausea [Unknown]
  - Sinusitis [Unknown]
